FAERS Safety Report 17148040 (Version 1)
Quarter: 2020Q3

REPORT INFORMATION
  Report Type: Spontaneous
  Country: US (occurrence: US)
  Receive Date: 20191212
  Receipt Date: 20191212
  Transmission Date: 20201105
  Serious: No
  Sender: FDA-Public Use
  Company Number: NVSC2019US063445

PATIENT
  Age: 45 Year
  Sex: Female

DRUGS (1)
  1. EPHEDRINE. [Suspect]
     Active Substance: EPHEDRINE
     Indication: PRODUCT USED FOR UNKNOWN INDICATION
     Dosage: UNK
     Route: 065

REACTIONS (1)
  - Toxicity to various agents [Unknown]
